FAERS Safety Report 5409529-0 (Version None)
Quarter: 2007Q3

REPORT INFORMATION
  Report Type: 
  Country: None (occurrence: None)
  Receive Date: 20070808
  Receipt Date: 20070808
  Transmission Date: 20080115
  Serious: Yes (Hospitalization)
  Sender: FDA-Public Use
  Company Number: None

PATIENT
  Age: 60 Year
  Sex: Male
  Weight: 90.2658 kg

DRUGS (1)
  1. INFLIXIMAB 100MG [Suspect]
     Indication: COLITIS ULCERATIVE
     Dosage: 500MG EVERY 8 WEEKS IV
     Route: 042
     Dates: start: 20070403, end: 20070403

REACTIONS (10)
  - ALPHA HAEMOLYTIC STREPTOCOCCAL INFECTION [None]
  - ANTIMICROBIAL SUSCEPTIBILITY TEST RESISTANT [None]
  - ARTHRALGIA [None]
  - CHILLS [None]
  - JOINT STIFFNESS [None]
  - MUSCULOSKELETAL STIFFNESS [None]
  - NIGHT SWEATS [None]
  - PYREXIA [None]
  - RASH [None]
  - RASH PRURITIC [None]
